FAERS Safety Report 9889365 (Version 2)
Quarter: 2014Q1

REPORT INFORMATION
  Report Type: Spontaneous
  Country: US (occurrence: US)
  Receive Date: 20140211
  Receipt Date: 20140224
  Transmission Date: 20141002
  Serious: Yes (Other)
  Sender: FDA-Public Use
  Company Number: ALCN2014US000985

PATIENT
  Sex: Female

DRUGS (1)
  1. BETADINE [Suspect]
     Route: 047

REACTIONS (3)
  - Angioedema [Recovered/Resolved]
  - Drug hypersensitivity [Unknown]
  - Headache [Recovered/Resolved]
